FAERS Safety Report 16200991 (Version 1)
Quarter: 2019Q2

REPORT INFORMATION
  Report Type: Spontaneous
  Country: US (occurrence: US)
  Receive Date: 20190416
  Receipt Date: 20190416
  Transmission Date: 20190711
  Serious: No
  Sender: FDA-Public Use
  Company Number: US-BION-007485

PATIENT
  Age: 54 Year
  Sex: Male
  Weight: 127 kg

DRUGS (5)
  1. CINNAMOMUM VERUM BARK [Concomitant]
     Active Substance: CINNAMON
  2. METFORMIN [Concomitant]
     Active Substance: METFORMIN HYDROCHLORIDE
  3. LISINOPRIL. [Concomitant]
     Active Substance: LISINOPRIL
  4. GLIPIZIDE. [Concomitant]
     Active Substance: GLIPIZIDE
  5. ALEVE [Suspect]
     Active Substance: NAPROXEN SODIUM
     Indication: PAIN
     Dosage: DOSE: 1 OR 2 LIQUID GELS
     Route: 048
     Dates: start: 20181012, end: 20181012

REACTIONS (3)
  - Product taste abnormal [Unknown]
  - Poor quality product administered [Not Recovered/Not Resolved]
  - Product physical consistency issue [Unknown]

NARRATIVE: CASE EVENT DATE: 20181012
